FAERS Safety Report 8384066-2 (Version None)
Quarter: 2012Q2

REPORT INFORMATION
  Report Type: 
  Country: None (occurrence: None)
  Receive Date: 20120524
  Receipt Date: 20120410
  Transmission Date: 20120825
  Serious: Yes (Other)
  Sender: FDA-Public Use
  Company Number: CHPA2011US13441

PATIENT
  Sex: Male

DRUGS (1)
  1. PHENYLEPHRINE HCL [Suspect]
     Indication: NASAL CONGESTION
     Dosage: 3-4 SPRAYS EACH NOSTRIL
     Route: 045

REACTIONS (6)
  - DRUG DEPENDENCE [None]
  - OVERDOSE [None]
  - NASAL CONGESTION [None]
  - INCORRECT DRUG ADMINISTRATION DURATION [None]
  - ACCIDENTAL EXPOSURE [None]
  - REBOUND EFFECT [None]
